FAERS Safety Report 6084218-0 (Version None)
Quarter: 2009Q1

REPORT INFORMATION
  Report Type: 
  Country: None (occurrence: None)
  Receive Date: 20090217
  Receipt Date: 20090130
  Transmission Date: 20090719
  Serious: No
  Sender: FDA-Public Use
  Company Number: FRP09000119

PATIENT
  Age: 68 Year
  Sex: Female
  Weight: 55 kg

DRUGS (7)
  1. ACTONEL [Suspect]
     Indication: OSTEOPOROSIS
     Dosage: 35 MG, 1/WEEK, ORAL
     Route: 048
     Dates: start: 20081202, end: 20090115
  2. LEVOTHYROXINE SODIUM [Concomitant]
  3. STABLON (TIANEPTINE) [Concomitant]
  4. XANAX [Concomitant]
  5. PRAXILENE (NAFTIDROFURYL OXALATE) [Concomitant]
  6. GINKOR FORT (GINGKO BILOBA, HEPTAMINOL HYDROCHLORIDE, TROXERUTIN) [Concomitant]
  7. BIOCIDAN (CETHEXONIUM CHLORIDE) [Concomitant]

REACTIONS (3)
  - DYSAESTHESIA [None]
  - JOINT CREPITATION [None]
  - PARALYSIS [None]
